FAERS Safety Report 18285729 (Version 3)
Quarter: 2020Q4

REPORT INFORMATION
  Report Type: Spontaneous
  Country: IT (occurrence: IT)
  Receive Date: 20200919
  Receipt Date: 20201117
  Transmission Date: 20210113
  Serious: Yes (Life-Threatening, Hospitalization, Disabling, Other)
  Sender: FDA-Public Use
  Company Number: IT-AUROBINDO-AUR-APL-2020-048001

PATIENT
  Age: 65 Year
  Sex: Male

DRUGS (12)
  1. CAPECITABINE. [Suspect]
     Active Substance: CAPECITABINE
     Indication: NEUROENDOCRINE TUMOUR OF THE LUNG METASTATIC
  2. OXALIPLATIN. [Suspect]
     Active Substance: OXALIPLATIN
     Indication: METASTASES TO BONE
  3. OXALIPLATIN. [Suspect]
     Active Substance: OXALIPLATIN
     Indication: METASTASES TO LYMPH NODES
  4. OXALIPLATIN. [Suspect]
     Active Substance: OXALIPLATIN
     Indication: CARCINOID TUMOUR PULMONARY
  5. CAPECITABINE. [Suspect]
     Active Substance: CAPECITABINE
     Indication: CARCINOID TUMOUR PULMONARY
  6. CAPECITABINE. [Suspect]
     Active Substance: CAPECITABINE
     Indication: METASTASES TO LYMPH NODES
  7. OXALIPLATIN. [Suspect]
     Active Substance: OXALIPLATIN
     Indication: METASTASES TO LIVER
     Dosage: 104 MILLIGRAM/SQ. METER, CYCLICAL DAY 1 EVERY 3 WEEKS
     Route: 065
     Dates: start: 20190926
  8. OXALIPLATIN. [Suspect]
     Active Substance: OXALIPLATIN
     Indication: NEUROENDOCRINE TUMOUR OF THE LUNG METASTATIC
  9. CAPECITABINE. [Suspect]
     Active Substance: CAPECITABINE
     Indication: LUNG NEOPLASM MALIGNANT
  10. CAPECITABINE. [Suspect]
     Active Substance: CAPECITABINE
     Indication: METASTASES TO LIVER
     Dosage: 1.6 GRAM PER SQUARE METRE, CYCLICAL DAYS 1?15 EVERY 3 WEEKS
     Route: 065
     Dates: start: 20190926, end: 201910
  11. CAPECITABINE. [Suspect]
     Active Substance: CAPECITABINE
     Indication: METASTASES TO BONE
  12. OXALIPLATIN. [Suspect]
     Active Substance: OXALIPLATIN
     Indication: LUNG NEOPLASM MALIGNANT

REACTIONS (7)
  - Gait disturbance [Recovered/Resolved]
  - Hyperammonaemia [Recovered/Resolved]
  - Hyperammonaemic encephalopathy [Recovered/Resolved]
  - Memory impairment [Recovered/Resolved]
  - Toxic encephalopathy [Recovered/Resolved]
  - Confusional state [Recovered/Resolved]
  - Product use in unapproved indication [Unknown]

NARRATIVE: CASE EVENT DATE: 20191007
